FAERS Safety Report 24087453 (Version 1)
Quarter: 2024Q3

REPORT INFORMATION
  Report Type: Other
  Country: GR (occurrence: GR)
  Receive Date: 20240714
  Receipt Date: 20240714
  Transmission Date: 20241017
  Serious: Yes (Death)
  Sender: B BRAUN
  Company Number: GR-B.Braun Medical Inc.-2159102

PATIENT
  Age: 44 Year
  Sex: Male
  Weight: 0.81 kg

DRUGS (10)
  1. METRONIDAZOLE [Suspect]
     Active Substance: METRONIDAZOLE
     Indication: Necrotising colitis
  2. METRONIDAZOLE [Suspect]
     Active Substance: METRONIDAZOLE
     Indication: Antibiotic therapy
  3. MEROPENEM [Suspect]
     Active Substance: MEROPENEM
  4. FLUCONAZOLE [Concomitant]
     Active Substance: FLUCONAZOLE
  5. Surfactant [Concomitant]
  6. COLISTIN [Suspect]
     Active Substance: COLISTIN
  7. AZTREONAM [Suspect]
     Active Substance: AZTREONAM
  8. AMPICILLIN [Suspect]
     Active Substance: AMPICILLIN
  9. GENTAMICIN [Suspect]
     Active Substance: GENTAMICIN
  10. AMIKACIN [Suspect]
     Active Substance: AMIKACIN

REACTIONS (4)
  - Off label use [Fatal]
  - Fungaemia [Fatal]
  - Fungal infection [Fatal]
  - Product administered to patient of inappropriate age [Fatal]
